FAERS Safety Report 8473857-5 (Version None)
Quarter: 2012Q2

REPORT INFORMATION
  Report Type: 
  Country: None (occurrence: None)
  Receive Date: 20120628
  Receipt Date: 20111229
  Transmission Date: 20120825
  Serious: Yes (Death)
  Sender: FDA-Public Use
  Company Number: US-MYLANLABS-2012S1000029

PATIENT
  Age: 43 Year
  Sex: Female

DRUGS (5)
  1. BLOOD PRESSURE MEDICATION [Concomitant]
  2. CLOZAPINE [Suspect]
     Route: 048
     Dates: start: 20111115, end: 20111201
  3. CONTRACEPTIVES NOS [Concomitant]
  4. ANTIDEPRESSANTS [Concomitant]
  5. MUSCLE RELAXANTS [Concomitant]

REACTIONS (1)
  - DEATH [None]
